FAERS Safety Report 4823488-0 (Version None)
Quarter: 2005Q4

REPORT INFORMATION
  Report Type: 
  Country: None (occurrence: None)
  Receive Date: 20051107
  Receipt Date: 20051027
  Transmission Date: 20060501
  Serious: Yes (Hospitalization)
  Sender: FDA-Public Use
  Company Number: S05-USA-03846-01

PATIENT
  Age: 52 Year
  Sex: Female

DRUGS (9)
  1. LEXAPRO [Suspect]
     Indication: DEPRESSION
     Dosage: 30 MG QD PO
     Route: 048
     Dates: start: 20050101, end: 20050101
  2. LEXAPRO [Suspect]
     Indication: DEPRESSION
     Dosage: 10 MG QD PO
     Route: 048
     Dates: start: 20040101, end: 20041101
  3. LEXAPRO [Suspect]
     Indication: DEPRESSION
     Dosage: 20 MG QD PO
     Route: 048
     Dates: start: 20041101, end: 20050101
  4. LEXAPRO [Suspect]
     Indication: DEPRESSION
     Dosage: 20 MG QD PO
     Route: 048
     Dates: start: 20050101
  5. WELLBUTRIN [Suspect]
     Indication: DEPRESSION
     Dates: end: 20041001
  6. RISPERDAL [Suspect]
     Indication: PSYCHOTIC DISORDER
     Dosage: 3 MG QD PO
     Route: 048
     Dates: start: 20041101
  7. RISPERDAL [Suspect]
     Indication: PSYCHOTIC DISORDER
  8. RISPERDAL [Suspect]
     Indication: PSYCHOTIC DISORDER
     Dosage: 0.5 MG QD PO
     Route: 048
     Dates: end: 20050727
  9. MULTI-VITAMIN [Concomitant]

REACTIONS (7)
  - ALOPECIA [None]
  - DEPRESSION [None]
  - INAPPROPRIATE SCHEDULE OF DRUG ADMINISTRATION [None]
  - MENTAL DISORDER [None]
  - PARANOIA [None]
  - PSYCHOTIC DISORDER [None]
  - SOMNOLENCE [None]
